FAERS Safety Report 9399689 (Version 1)
Quarter: 2013Q3

REPORT INFORMATION
  Report Type: Spontaneous
  Country: US (occurrence: US)
  Receive Date: 20130710
  Receipt Date: 20130710
  Transmission Date: 20140515
  Serious: Yes (Hospitalization, Disabling)
  Sender: FDA-Public Use
  Company Number: 2013STPI000262

PATIENT
  Age: 6 Year
  Sex: Male

DRUGS (1)
  1. ONCASPAR [Suspect]
     Indication: PRODUCT USED FOR UNKNOWN INDICATION
     Route: 042
     Dates: start: 2013, end: 201305

REACTIONS (4)
  - Cerebrovascular accident [None]
  - Coma [None]
  - Wheezing [None]
  - Cardiac disorder [None]
